FAERS Safety Report 5963548-4 (Version None)
Quarter: 2008Q4

REPORT INFORMATION
  Report Type: 
  Country: None (occurrence: None)
  Receive Date: 20081124
  Receipt Date: 20080311
  Transmission Date: 20090506
  Serious: No
  Sender: FDA-Public Use
  Company Number: US-BAYER-200811105BCC

PATIENT
  Sex: Female

DRUGS (1)
  1. ALEVE [Suspect]
     Indication: DRUG USE FOR UNKNOWN INDICATION
     Route: 048
     Dates: start: 20061201

REACTIONS (2)
  - DISCOMFORT [None]
  - FLATULENCE [None]
